FAERS Safety Report 20545814 (Version 1)
Quarter: 2022Q1

REPORT INFORMATION
  Report Type: Spontaneous
  Country: FR (occurrence: FR)
  Receive Date: 20220303
  Receipt Date: 20220303
  Transmission Date: 20220423
  Serious: Yes (Hospitalization)
  Sender: FDA-Public Use
  Company Number: None

PATIENT
  Age: 91 Year
  Sex: Male
  Weight: 79 kg

DRUGS (2)
  1. FUROSEMIDE [Suspect]
     Active Substance: FUROSEMIDE
     Indication: Renal failure
     Dosage: 125 MILLIGRAM, QD
     Route: 048
     Dates: start: 202105
  2. FUROSEMIDE [Suspect]
     Active Substance: FUROSEMIDE
     Indication: Renal failure
     Dosage: UNK, NR
     Route: 042
     Dates: start: 20210808, end: 20210810

REACTIONS (3)
  - Haemoconcentration [Recovered/Resolved]
  - Acute kidney injury [Recovering/Resolving]
  - Condition aggravated [Recovering/Resolving]

NARRATIVE: CASE EVENT DATE: 20210811
